FAERS Safety Report 5076286-X (Version None)
Quarter: 2006Q3

REPORT INFORMATION
  Report Type: 
  Country: None (occurrence: None)
  Receive Date: 20060807
  Receipt Date: 20060720
  Transmission Date: 20061208
  Serious: Yes (Other)
  Sender: FDA-Public Use
  Company Number: 8018027

PATIENT
  Age: 74 Year
  Sex: Female

DRUGS (10)
  1. LIDOCAINE [Suspect]
     Indication: ANAESTHESIA
     Dosage: 4 ML ONCE EYE
     Route: 031
  2. PREDNISOLONE [Suspect]
     Indication: POSTOPERATIVE CARE
     Dosage: EYE
     Route: 031
  3. BUPIVACAINE [Suspect]
     Indication: ANAESTHESIA
     Dosage: 4 ML ONCE EYE
     Route: 031
  4. HYALURONIDASE [Suspect]
     Indication: ANAESTHESIA
     Dosage: 4  ML ONCE EYE
     Route: 031
  5. POVIDONE IODINE [Suspect]
     Indication: ENDOPHTHALMITIS
     Dosage: TOP
     Route: 061
  6. POVIDONE IODINE [Suspect]
     Indication: PROPHYLAXIS
     Dosage: TOP
     Route: 061
  7. CEFUROXIME [Suspect]
     Indication: ENDOPHTHALMITIS
     Dosage: SCJ
     Route: 057
  8. CEFUROXIME [Suspect]
     Indication: PROPHYLAXIS
     Dosage: SCJ
     Route: 057
  9. CHLORAMPHENICOL [Suspect]
     Indication: POSTOPERATIVE CARE
     Dosage: EYE
     Route: 031
  10. PROXYMETACAINE [Concomitant]

REACTIONS (8)
  - CONJUNCTIVAL OEDEMA [None]
  - DRUG HYPERSENSITIVITY [None]
  - EXOPHTHALMOS [None]
  - INTRAOCULAR PRESSURE INCREASED [None]
  - ORBITAL OEDEMA [None]
  - PAROPHTHALMIA [None]
  - POST PROCEDURAL COMPLICATION [None]
  - VISUAL ACUITY REDUCED [None]
